FAERS Safety Report 14534925 (Version 1)
Quarter: 2018Q1

REPORT INFORMATION
  Report Type: Spontaneous
  Country: FR (occurrence: FR)
  Receive Date: 20180215
  Receipt Date: 20180215
  Transmission Date: 20180509
  Serious: Yes (Other)
  Sender: FDA-Public Use
  Company Number: FR-AUROBINDO-AUR-APL-2018-006858

PATIENT
  Age: 86 Year
  Sex: Female

DRUGS (2)
  1. PREDNISONE. [Suspect]
     Active Substance: PREDNISONE
     Indication: STEROID THERAPY
     Dosage: 80 MG, ONCE A DAY
  2. PREDNISONE. [Suspect]
     Active Substance: PREDNISONE
     Indication: SUBDURAL HAEMATOMA
     Dosage: 80 MG, QD
     Route: 048
     Dates: start: 2009

REACTIONS (3)
  - Off label use [Unknown]
  - Cerebral venous thrombosis [Recovered/Resolved]
  - Partial seizures [Unknown]
